FAERS Safety Report 14568411 (Version 1)
Quarter: 2018Q1

REPORT INFORMATION
  Report Type: Spontaneous
  Country: FR (occurrence: FR)
  Receive Date: 20180223
  Receipt Date: 20180223
  Transmission Date: 20180509
  Serious: Yes (Hospitalization)
  Sender: FDA-Public Use
  Company Number: FR-JNJFOC-20180231820

PATIENT
  Age: 28 Year
  Sex: Female

DRUGS (2)
  1. EPITOMAX [Suspect]
     Active Substance: TOPIRAMATE
     Indication: EPILEPSY
     Route: 048
     Dates: start: 20180202
  2. ZEBINIX [Suspect]
     Active Substance: ESLICARBAZEPINE ACETATE
     Indication: EPILEPSY
     Route: 048
     Dates: start: 20180202, end: 20180204

REACTIONS (1)
  - Hyponatraemia [Recovered/Resolved]

NARRATIVE: CASE EVENT DATE: 20180204
